FAERS Safety Report 5194456-7 (Version None)
Quarter: 2006Q4

REPORT INFORMATION
  Report Type: 
  Country: None (occurrence: None)
  Receive Date: 20061222
  Receipt Date: 20061218
  Transmission Date: 20070319
  Serious: Yes (Hospitalization)
  Sender: FDA-Public Use
  Company Number: FABR-11757

PATIENT
  Age: 50 Year
  Sex: Female
  Weight: 107 kg

DRUGS (3)
  1. FABRAZYME [Suspect]
     Indication: FABRY'S DISEASE
     Dosage: 105 MG Q2WKS IV
     Route: 042
     Dates: start: 20031023, end: 20061108
  2. IBUPROFEN [Concomitant]
  3. ALLEGRA-D 12 HOUR [Concomitant]

REACTIONS (10)
  - ALANINE AMINOTRANSFERASE INCREASED [None]
  - ASPARTATE AMINOTRANSFERASE INCREASED [None]
  - BLOOD ALKALINE PHOSPHATASE INCREASED [None]
  - DEHYDRATION [None]
  - FLUID INTAKE REDUCED [None]
  - JAUNDICE [None]
  - LIVER FUNCTION TEST ABNORMAL [None]
  - ORAL INTAKE REDUCED [None]
  - PYREXIA [None]
  - WEIGHT DECREASED [None]
